FAERS Safety Report 9127346 (Version 1)
Quarter: 2013Q1

REPORT INFORMATION
  Report Type: Spontaneous
  Country: US (occurrence: US)
  Receive Date: 20130228
  Receipt Date: 20130228
  Transmission Date: 20140127
  Serious: No
  Sender: FDA-Public Use
  Company Number: US-PFIZER INC-2013068199

PATIENT
  Age: 65 Year
  Sex: Female
  Weight: 82.54 kg

DRUGS (6)
  1. CHANTIX [Suspect]
     Indication: SMOKING CESSATION THERAPY
     Dosage: 0.5 MG, 1X/DAY
     Route: 048
     Dates: start: 201302, end: 201302
  2. CHANTIX [Suspect]
     Dosage: 1 MG, 2X/DAY
     Route: 048
     Dates: start: 201302
  3. ZOLOFT [Concomitant]
     Dosage: UNK
     Dates: start: 1988
  4. XANAX [Concomitant]
     Dosage: UNK
     Dates: start: 1988
  5. SIMVASTATIN [Concomitant]
     Indication: BLOOD CHOLESTEROL INCREASED
     Dosage: UNK
  6. MYSOLINE [Concomitant]
     Indication: TREMOR
     Dosage: UNK
     Dates: start: 1988

REACTIONS (3)
  - Anxiety [Not Recovered/Not Resolved]
  - Heart rate increased [Not Recovered/Not Resolved]
  - Restlessness [Not Recovered/Not Resolved]
